FAERS Safety Report 7009775-9 (Version None)
Quarter: 2010Q3

REPORT INFORMATION
  Report Type: 
  Country: None (occurrence: None)
  Receive Date: 20100923
  Receipt Date: 20100917
  Transmission Date: 20110219
  Serious: Yes (Hospitalization)
  Sender: FDA-Public Use
  Company Number: US-CEPHALON-2010004968

PATIENT
  Sex: Male
  Weight: 96 kg

DRUGS (4)
  1. BLINDED (ARMODAFINIL) [Suspect]
     Indication: FATIGUE
     Route: 048
     Dates: start: 20100909, end: 20100910
  2. TEMODAR [Suspect]
  3. DECADRON [Suspect]
  4. KEPPRA [Suspect]

REACTIONS (2)
  - AGITATION [None]
  - PERSONALITY CHANGE [None]
